FAERS Safety Report 8288858-X (Version None)
Quarter: 2012Q2

REPORT INFORMATION
  Report Type: 
  Country: None (occurrence: None)
  Receive Date: 20120411
  Receipt Date: 20120327
  Transmission Date: 20120825
  Serious: Yes (Other)
  Sender: FDA-Public Use
  Company Number: 2012-1608

PATIENT
  Age: 10 Year
  Sex: Male
  Weight: 35 kg

DRUGS (2)
  1. INCRELEX [Suspect]
     Indication: PRODUCT USED FOR UNKNOWN INDICATION
     Dosage: (42 UNITS)
  2. MULTIVITAMIN (MULTIVITAMIN /00831701/) [Concomitant]

REACTIONS (1)
  - HAEMATURIA [None]
